FAERS Safety Report 8725737 (Version 2)
Quarter: 2012Q4

REPORT INFORMATION
  Report Type: 
  Country: DE (occurrence: DE)
  Receive Date: 20120816
  Receipt Date: 20121008
  Transmission Date: 20130627
  Serious: Yes (Hospitalization, Other)
  Sender: FDA-Public Use
  Company Number: DE-AMGEN-DEUSP2012051260

PATIENT
  Age: 52 Year
  Sex: Female

DRUGS (1)
  1. ENBREL [Suspect]
     Indication: PSORIATIC ARTHROPATHY
     Dosage: 50 mg, every 12 days
     Route: 058
     Dates: start: 200504, end: 201202

REACTIONS (8)
  - Breast cancer female [Unknown]
  - Fall [Unknown]
  - Haematoma [Unknown]
  - Swelling [Unknown]
  - Sensory disturbance [Unknown]
  - Joint range of motion decreased [Unknown]
  - Pain [Unknown]
  - Cystitis [Unknown]
